FAERS Safety Report 20430773 (Version 2)
Quarter: 2025Q2

REPORT INFORMATION
  Report Type: Report from Study
  Country: FR (occurrence: FR)
  Receive Date: 20220204
  Receipt Date: 20250425
  Transmission Date: 20250716
  Serious: Yes (Other)
  Sender: SERVIER
  Company Number: FR-SERVIER-S20012390

PATIENT

DRUGS (7)
  1. PEGASPARGASE [Suspect]
     Active Substance: PEGASPARGASE
     Indication: Acute lymphocytic leukaemia
     Dosage: 1425 IU, QD, D12, D26
     Route: 042
     Dates: start: 20181023, end: 20191106
  2. VINCRISTINE SULFATE [Suspect]
     Active Substance: VINCRISTINE SULFATE
     Indication: Acute lymphocytic leukaemia
     Dosage: 0.9 MG, QD, ON D8, D15, D22, D29
     Route: 042
     Dates: start: 20181019, end: 20181109
  3. DAUNORUBICIN HYDROCHLORIDE [Suspect]
     Active Substance: DAUNORUBICIN HYDROCHLORIDE
     Indication: Acute lymphocytic leukaemia
     Dosage: 18 MG, QD, ON D8, D15, D22, D29
     Route: 042
     Dates: start: 20181023, end: 20181106
  4. METHOTREXATE [Suspect]
     Active Substance: METHOTREXATE
     Indication: Acute lymphocytic leukaemia
     Dosage: 12 MG, QD, ON D13, D24
     Route: 037
     Dates: start: 20181024, end: 20181106
  5. CYTARABINE [Suspect]
     Active Substance: CYTARABINE
     Indication: Acute lymphocytic leukaemia
     Dosage: 30 MG, QD, ON D13, D24
     Route: 037
     Dates: start: 20181024, end: 20181106
  6. HYDROCORTISONE [Suspect]
     Active Substance: HYDROCORTISONE
     Indication: Acute lymphocytic leukaemia
     Dosage: 15 MG, QD, ON D13, D24
     Route: 037
     Dates: start: 20181024, end: 20181106
  7. PREDNISOLONE [Suspect]
     Active Substance: PREDNISOLONE
     Indication: Acute lymphocytic leukaemia
     Dosage: 30 MG, QD, ON D8 TO D28
     Route: 048
     Dates: start: 20181019, end: 20181108

REACTIONS (2)
  - Hypofibrinogenaemia [Recovered/Resolved]
  - Cholestasis [Recovered/Resolved]

NARRATIVE: CASE EVENT DATE: 20181102
